FAERS Safety Report 8112338-5 (Version None)
Quarter: 2012Q1

REPORT INFORMATION
  Report Type: 
  Country: None (occurrence: None)
  Receive Date: 20120203
  Receipt Date: 20111007
  Transmission Date: 20120608
  Serious: Yes (Other)
  Sender: FDA-Public Use
  Company Number: US-ASTRAZENECA-2011SE60725

PATIENT
  Sex: Male

DRUGS (3)
  1. VANDETANIB [Suspect]
     Route: 048
  2. VANDETANIB [Suspect]
     Indication: THYROID CANCER
     Route: 048
  3. VANDETANIB [Suspect]
     Route: 048

REACTIONS (2)
  - SKIN TOXICITY [None]
  - ELECTROCARDIOGRAM QT PROLONGED [None]
